FAERS Safety Report 5572829-8 (Version None)
Quarter: 2007Q4

REPORT INFORMATION
  Report Type: 
  Country: None (occurrence: None)
  Receive Date: 20071223
  Receipt Date: 20071219
  Transmission Date: 20080405
  Serious: Yes (Other)
  Sender: FDA-Public Use
  Company Number: PHEH2007US15924

PATIENT
  Age: 52 Year
  Sex: Female

DRUGS (1)
  1. ZELNORM [Suspect]
     Dosage: 1/DAY
     Route: 048

REACTIONS (4)
  - DYSPNOEA [None]
  - HYPERHIDROSIS [None]
  - PHARYNGEAL OEDEMA [None]
  - WEIGHT DECREASED [None]
